FAERS Safety Report 16647194 (Version 3)
Quarter: 2019Q4

REPORT INFORMATION
  Report Type: Spontaneous
  Country: US (occurrence: US)
  Receive Date: 20190730
  Receipt Date: 20191001
  Transmission Date: 20200122
  Serious: Yes (Other)
  Sender: FDA-Public Use
  Company Number: US-BAYER-2019-140125

PATIENT
  Age: 36 Year
  Sex: Female

DRUGS (1)
  1. KYLEENA [Suspect]
     Active Substance: LEVONORGESTREL
     Indication: CONTRACEPTION
     Dosage: 17.5 MCG/24HR, CONT
     Route: 015
     Dates: start: 20181109

REACTIONS (6)
  - Abdominal pain [None]
  - Device issue [None]
  - Pelvic pain [None]
  - Dyspareunia [None]
  - Vaginal discharge [None]
  - Genital haemorrhage [None]

NARRATIVE: CASE EVENT DATE: 20190719
